FAERS Safety Report 18344388 (Version 6)
Quarter: 2020Q4

REPORT INFORMATION
  Report Type: Spontaneous
  Country: JP (occurrence: JP)
  Receive Date: 20201005
  Receipt Date: 20201111
  Transmission Date: 20210114
  Serious: Yes (Death)
  Sender: FDA-Public Use
  Company Number: JP-PFIZER INC-2020379668

PATIENT
  Age: 62 Year
  Sex: Female

DRUGS (4)
  1. CYTOCHROME C [Concomitant]
  2. TEGAFUR/URACIL [Concomitant]
     Active Substance: TEGAFUR\URACIL
  3. MEDROXYPROGESTERONE ACETATE. [Suspect]
     Active Substance: MEDROXYPROGESTERONE ACETATE
     Indication: BREAST CANCER RECURRENT
     Dosage: 600 MG, DAILY
     Route: 048
  4. TRIMEBUTINE MALEATE [Concomitant]
     Active Substance: TRIMEBUTINE MALEATE

REACTIONS (1)
  - Cerebral infarction [Fatal]
